FAERS Safety Report 4428242-X (Version None)
Quarter: 2004Q3

REPORT INFORMATION
  Report Type: 
  Country: None (occurrence: None)
  Receive Date: 20040813
  Receipt Date: 20040801
  Transmission Date: 20050211
  Serious: No
  Sender: FDA-Public Use
  Company Number: 04H-163-0269661-00

PATIENT
  Age: 75 Year
  Sex: Female

DRUGS (7)
  1. ERYTHROCIN LACTOBIONATE INJECTION (ERYTHROMYCIN LACTOBIONATE) (ERYTHRO [Suspect]
     Indication: INFECTION
     Dosage: 1 GM, EVERY 6 HOURS, INTRAVENOUS
     Route: 042
  2. CYCLOPHOSPHAMIDE [Concomitant]
  3. VINCRISTINE SULFATE [Concomitant]
  4. METHOTREXATE SODIUM [Concomitant]
  5. CEFOXITIN SODIUM [Concomitant]
  6. GENTAMICIN SULFATE [Concomitant]
  7. ETACRYNIC ACID [Concomitant]

REACTIONS (6)
  - CONFUSIONAL STATE [None]
  - DEAFNESS NEUROSENSORY [None]
  - OTOTOXICITY [None]
  - PARANOIA [None]
  - PSYCHOTIC DISORDER [None]
  - TYMPANIC MEMBRANE PERFORATION [None]
